APPROVED DRUG PRODUCT: PROMETHAZINE HYDROCHLORIDE AND DEXTROMETHORPHAN HYDROBROMIDE
Active Ingredient: DEXTROMETHORPHAN HYDROBROMIDE; PROMETHAZINE HYDROCHLORIDE
Strength: 15MG/5ML;6.25MG/5ML **Federal Register determination that product was not discontinued or withdrawn for safety or effectiveness reasons**
Dosage Form/Route: SYRUP;ORAL
Application: N011265 | Product #002 | TE Code: AA
Applicant: ANI PHARMACEUTICALS INC
Approved: Apr 2, 1984 | RLD: Yes | RS: No | Type: RX